FAERS Safety Report 9482475 (Version 1)
Quarter: 2013Q3

REPORT INFORMATION
  Report Type: Spontaneous
  Country: AU (occurrence: AU)
  Receive Date: 20130828
  Receipt Date: 20130828
  Transmission Date: 20140515
  Serious: Yes (Hospitalization, Disabling)
  Sender: FDA-Public Use
  Company Number: AU-ASTRAZENECA-2013SE64428

PATIENT
  Age: 83 Year
  Sex: Male

DRUGS (4)
  1. SEROQUEL [Suspect]
     Route: 048
  2. LUCENTIS INJECTION [Suspect]
     Route: 047
     Dates: start: 20080318
  3. BLACKMORES MACUVISION [Concomitant]
  4. LIPITOR [Concomitant]

REACTIONS (2)
  - Cerebrovascular accident [Recovering/Resolving]
  - Ischaemia [Unknown]
